FAERS Safety Report 9443451 (Version 2)
Quarter: 2013Q3

REPORT INFORMATION
  Report Type: Spontaneous
  Country: FR (occurrence: FR)
  Receive Date: 20130806
  Receipt Date: 20130906
  Transmission Date: 20140515
  Serious: Yes (Hospitalization)
  Sender: FDA-Public Use
  Company Number: PHHY2013FR083809

PATIENT
  Age: 80 Year
  Sex: Female

DRUGS (6)
  1. TAREG [Suspect]
     Route: 048
     Dates: end: 20130726
  2. DEROXAT [Suspect]
     Route: 048
     Dates: end: 20130726
  3. NEBILOX [Concomitant]
  4. TAHOR [Concomitant]
  5. KARDEGIC [Concomitant]
  6. LEXOMIL [Concomitant]

REACTIONS (1)
  - Hyponatraemia [Recovered/Resolved]
